FAERS Safety Report 5057342-9 (Version None)
Quarter: 2006Q3

REPORT INFORMATION
  Report Type: 
  Country: None (occurrence: None)
  Receive Date: 20060721
  Receipt Date: 20050822
  Transmission Date: 20061208
  Serious: No
  Sender: FDA-Public Use
  Company Number: US-GLAXOSMITHKLINE-A0571216A

PATIENT
  Age: 72 Year
  Sex: Male

DRUGS (7)
  1. AVANDIA [Suspect]
     Dosage: 4MG TWICE PER DAY
     Route: 048
  2. GLYBURIDE [Concomitant]
  3. GLUCOPHAGE [Concomitant]
  4. TIAZAC [Concomitant]
  5. ALOPURINOL [Concomitant]
  6. FLOMAX [Concomitant]
  7. PRINZIDE [Concomitant]

REACTIONS (4)
  - ARTHRALGIA [None]
  - FATIGUE [None]
  - HUNGER [None]
  - MUSCLE SPASMS [None]
